FAERS Safety Report 7894869-6 (Version None)
Quarter: 2011Q4

REPORT INFORMATION
  Report Type: 
  Country: None (occurrence: None)
  Receive Date: 20111106
  Receipt Date: 20110819
  Transmission Date: 20120403
  Serious: No
  Sender: FDA-Public Use
  Company Number: US-AMGEN-USASP2011042500

PATIENT
  Age: 49 Year
  Sex: Female
  Weight: 99.773 kg

DRUGS (7)
  1. OMEPRAZOLE [Concomitant]
     Dosage: 20 MG, UNK
  2. TRAMADOL HCL [Concomitant]
     Dosage: 50 MG, UNK
  3. FOLIC ACID [Concomitant]
     Dosage: 1 MG, UNK
  4. ENBREL [Suspect]
     Indication: PRODUCT USED FOR UNKNOWN INDICATION
     Dosage: 50 MG, QWK
     Route: 058
  5. VITAMIN D [Concomitant]
     Dosage: UNK
  6. METHOTREXATE [Concomitant]
     Dosage: 2.5 MG, UNK
  7. LOTREL [Concomitant]

REACTIONS (1)
  - INJECTION SITE PAIN [None]
